FAERS Safety Report 7234317-2 (Version None)
Quarter: 2010Q4

REPORT INFORMATION
  Report Type: 
  Country: None (occurrence: None)
  Receive Date: 20101130
  Receipt Date: 20090827
  Transmission Date: 20110411
  Serious: Yes (Hospitalization)
  Sender: FDA-Public Use
  Company Number: 2009-194900-NL

PATIENT
  Age: 43 Year
  Sex: Female
  Weight: 94.8018 kg

DRUGS (20)
  1. NUVARING [Suspect]
     Indication: CONTRACEPTION
     Dosage: 1 DF
     Dates: end: 20070613
  2. NUVARING [Suspect]
     Indication: CONTRACEPTION
     Dosage: 1 DF
     Dates: start: 20030901
  3. SULFAMETHOXAZOLE [Concomitant]
  4. FUROSEMIDE [Concomitant]
  5. CYMBALTA [Concomitant]
  6. VYTORIN [Concomitant]
  7. ADVAIR [Concomitant]
  8. ZYRTEC [Concomitant]
  9. POTASSIUM CHLORIDE [Concomitant]
  10. BENAZEPRIL HYDROCHLORIDE [Concomitant]
  11. PROCHLORPERAZINE [Concomitant]
  12. AMBIEN CR [Concomitant]
  13. DARVOCET-N 100 [Concomitant]
  14. ZITHROMAX [Concomitant]
  15. NAPROXEN [Concomitant]
  16. CYCLOBENZAPRINE [Concomitant]
  17. PROPOXYPHENE NAPSYLATE AND ACETAMINOPHEN [Concomitant]
  18. LIPITOR [Concomitant]
  19. CLONAZEPAM [Concomitant]
  20. CEFADROXIL [Concomitant]

REACTIONS (9)
  - AMENORRHOEA [None]
  - DEEP VEIN THROMBOSIS [None]
  - GASTROENTERITIS BACTERIAL [None]
  - GASTROENTERITIS VIRAL [None]
  - INFLUENZA [None]
  - MUSCULOSKELETAL CHEST PAIN [None]
  - OEDEMA PERIPHERAL [None]
  - PULMONARY EMBOLISM [None]
  - SINUSITIS [None]
